FAERS Safety Report 15620619 (Version 1)
Quarter: 2018Q4

REPORT INFORMATION
  Report Type: Spontaneous
  Country: US (occurrence: US)
  Receive Date: 20181115
  Receipt Date: 20181115
  Transmission Date: 20190205
  Serious: No
  Sender: FDA-Public Use
  Company Number: US-BAUSCH-BL-2018-009768

PATIENT
  Age: 71 Year
  Sex: Male

DRUGS (2)
  1. OXYCONTIN [Concomitant]
     Active Substance: OXYCODONE HYDROCHLORIDE
     Indication: BACK PAIN
     Route: 048
     Dates: start: 20180331, end: 20180401
  2. ATIVAN [Suspect]
     Active Substance: LORAZEPAM
     Indication: CLAUSTROPHOBIA
     Dosage: 2 MG ONCE A DAY
     Route: 048
     Dates: start: 20180331, end: 20180331

REACTIONS (6)
  - Somnolence [Recovered/Resolved]
  - Disorientation [Recovered/Resolved]
  - Confusional state [Recovered/Resolved]
  - Off label use [Recovered/Resolved]
  - Hallucinations, mixed [Recovered/Resolved]
  - Amnesia [Recovered/Resolved]

NARRATIVE: CASE EVENT DATE: 20180331
